FAERS Safety Report 8139588 (Version 12)
Quarter: 2014Q4

REPORT INFORMATION
  Report Type: Report from Study
  Country: CA (occurrence: CA)
  Receive Date: 20110916
  Receipt Date: 20141022
  Transmission Date: 20150529
  Serious: Yes (Other)
  Sender: FDA-Public Use
  Company Number: PHHY2011CA81049

PATIENT
  Age: 52 Year
  Sex: Female

DRUGS (2)
  1. SANDOSTATIN LAR DEPOT [Suspect]
     Active Substance: OCTREOTIDE ACETATE
     Dosage: 10 MG, EVERY 10 WEEKS
     Route: 030
  2. SANDOSTATIN LAR DEPOT [Suspect]
     Active Substance: OCTREOTIDE ACETATE
     Indication: ACROMEGALY
     Dosage: 10 MG, EVERY 8 WEEKS
     Route: 030
     Dates: start: 200012

REACTIONS (18)
  - Emotional disorder [Unknown]
  - Injection site warmth [Unknown]
  - Weight decreased [Unknown]
  - Back pain [Unknown]
  - Nausea [Unknown]
  - Arthralgia [Unknown]
  - Hepatitis B [Unknown]
  - Visual impairment [Unknown]
  - Suicidal ideation [Recovering/Resolving]
  - Blood cortisol decreased [Unknown]
  - Injection site pain [Unknown]
  - Abdominal pain [Unknown]
  - Hepatic enzyme increased [Unknown]
  - Headache [Unknown]
  - Macular hole [Unknown]
  - Feeling hot [Unknown]
  - Blood pressure diastolic increased [Unknown]
  - Depression [Recovering/Resolving]

NARRATIVE: CASE EVENT DATE: 20120419
